FAERS Safety Report 12113449 (Version 1)
Quarter: 2016Q1

REPORT INFORMATION
  Report Type: Spontaneous
  Country: US (occurrence: US)
  Receive Date: 20160225
  Receipt Date: 20160225
  Transmission Date: 20160526
  Serious: No
  Sender: FDA-Public Use
  Company Number: US-009507513-1602USA011102

PATIENT

DRUGS (1)
  1. ASMANEX [Suspect]
     Active Substance: MOMETASONE FUROATE
     Dosage: 200 MICROGRAM, UNKNOWN (UNSPECIFIED BY REPORTER)
     Route: 055

REACTIONS (2)
  - Expired product administered [Unknown]
  - No adverse event [Unknown]
